FAERS Safety Report 9034386 (Version 1)
Quarter: 2013Q1

REPORT INFORMATION
  Report Type: Spontaneous
  Country: US (occurrence: None)
  Receive Date: 20130115
  Receipt Date: 20130115
  Transmission Date: 20140127
  Serious: Yes (Hospitalization)
  Sender: FDA-Public Use
  Company Number: ACO_33672_2013

PATIENT
  Age: 58 Year
  Sex: Female
  Weight: 99.8 kg

DRUGS (7)
  1. AMPYRA (DALFAMPRIDINE) TABLET, 10MG [Suspect]
     Indication: GAIT DISTURBANCE
     Route: 048
     Dates: end: 201210
  2. FUROSEMIDE (FUROSEMIDE SODIUM) [Concomitant]
  3. KCI (KCI) [Concomitant]
  4. LEVOTHYROXINE (LEVOTHYROXINE SODIUM) [Concomitant]
  5. CITALOPRAM [Concomitant]
  6. WARFARIN (WARFARIN SODIUM) [Concomitant]
  7. FABB (CYANOCOBALAMIN, FOLIC ACID, PYRIDOXINE HYDROCHLORIDE) [Concomitant]

REACTIONS (2)
  - Convulsion [None]
  - Multiple sclerosis relapse [None]
